FAERS Safety Report 18816370 (Version 1)
Quarter: 2021Q1

REPORT INFORMATION
  Report Type: Spontaneous
  Country: US (occurrence: US)
  Receive Date: 20210201
  Receipt Date: 20210201
  Transmission Date: 20210419
  Serious: Yes (Hospitalization)
  Sender: FDA-Public Use
  Company Number: None

PATIENT
  Age: 69 Year
  Sex: Female
  Weight: 71.7 kg

DRUGS (7)
  1. ZOFRAN ODT [Concomitant]
     Active Substance: ONDANSETRON HYDROCHLORIDE
  2. FAMOTIDINE. [Concomitant]
     Active Substance: FAMOTIDINE
  3. SENNA [Concomitant]
     Active Substance: SENNA LEAF\SENNOSIDES\SENNOSIDES A AND B
  4. ERTAPENEM. [Concomitant]
     Active Substance: ERTAPENEM SODIUM
  5. CAPECITABINE. [Suspect]
     Active Substance: CAPECITABINE
     Dates: start: 20200930, end: 20210115
  6. OLANZAPINE. [Concomitant]
     Active Substance: OLANZAPINE
  7. LEVOTHYROXINE. [Concomitant]
     Active Substance: LEVOTHYROXINE

REACTIONS (1)
  - Sepsis [None]

NARRATIVE: CASE EVENT DATE: 20210114
